FAERS Safety Report 15204633 (Version 1)
Quarter: 2018Q4

REPORT INFORMATION
  Report Type: Spontaneous
  Country: US (occurrence: US)
  Receive Date: 20180726
  Receipt Date: 20180726
  Transmission Date: 20190204
  Serious: No
  Sender: FDA-Public Use
  Company Number: US-AMPHASTAR PHARMACEUTICALS, INC.-2052791

PATIENT
  Age: 58 Year
  Sex: Male
  Weight: 81.82 kg

DRUGS (4)
  1. ENOXAPARIN SODIUM. [Suspect]
     Active Substance: ENOXAPARIN SODIUM
     Route: 058
  2. RESTASIS [Concomitant]
     Active Substance: CYCLOSPORINE
  3. OASIS TEARS [Concomitant]
     Active Substance: GLYCERIN
  4. BLOOD PRESSURE MEDICATION. [Concomitant]

REACTIONS (1)
  - Injection site bruising [Not Recovered/Not Resolved]
